FAERS Safety Report 17868192 (Version 1)
Quarter: 2020Q2

REPORT INFORMATION
  Report Type: Spontaneous
  Country: US (occurrence: US)
  Receive Date: 20200605
  Receipt Date: 20200605
  Transmission Date: 20200714
  Serious: Yes (Other)
  Sender: FDA-Public Use
  Company Number: US-GILEAD-2020-0469449

PATIENT
  Age: 57 Year
  Sex: Male
  Weight: 73 kg

DRUGS (21)
  1. CHOLECALCIFEROL [Concomitant]
     Active Substance: CHOLECALCIFEROL
  2. INSULIN GLARGINE [Concomitant]
     Active Substance: INSULIN GLARGINE
  3. PANTOPRAZOLE [Concomitant]
     Active Substance: PANTOPRAZOLE
  4. INSULIN LISPRO [Concomitant]
     Active Substance: INSULIN LISPRO
  5. BUDESONIDE. [Concomitant]
     Active Substance: BUDESONIDE
  6. DOCUSATE;SENNA [Concomitant]
  7. LINAGLIPTIN [Concomitant]
     Active Substance: LINAGLIPTIN
  8. ALBUTEROL HFA [Concomitant]
     Active Substance: ALBUTEROL SULFATE
  9. ASCORBIC ACID. [Concomitant]
     Active Substance: ASCORBIC ACID
  10. DEXAMETHASONE. [Concomitant]
     Active Substance: DEXAMETHASONE
  11. ASPIRIN (E.C.) [Concomitant]
     Active Substance: ASPIRIN
  12. ATORVASTATIN [Concomitant]
     Active Substance: ATORVASTATIN
  13. AZITHROMYCIN ANHYDROUS. [Concomitant]
     Active Substance: AZITHROMYCIN ANHYDROUS
  14. CEFTRIAXONE. [Concomitant]
     Active Substance: CEFTRIAXONE
  15. ENOXAPARIN [Concomitant]
     Active Substance: ENOXAPARIN
  16. POLYETHYLENE GLYCOL 3350. [Concomitant]
     Active Substance: POLYETHYLENE GLYCOL 3350
  17. SELINEXOR [Concomitant]
     Active Substance: SELINEXOR
  18. REMDESIVIR. [Suspect]
     Active Substance: REMDESIVIR
     Indication: COVID-19 PNEUMONIA
     Dosage: 100 MG, QD
     Route: 042
     Dates: start: 20200516, end: 20200519
  19. TRAMADOL. [Concomitant]
     Active Substance: TRAMADOL
  20. ZINC SULFATE. [Concomitant]
     Active Substance: ZINC SULFATE
  21. LISINOPRIL. [Concomitant]
     Active Substance: LISINOPRIL

REACTIONS (1)
  - Transaminases increased [Unknown]

NARRATIVE: CASE EVENT DATE: 20200519
